FAERS Safety Report 8307353-2 (Version None)
Quarter: 2012Q2

REPORT INFORMATION
  Report Type: 
  Country: None (occurrence: None)
  Receive Date: 20120419
  Receipt Date: 20120404
  Transmission Date: 20120825
  Serious: No
  Sender: FDA-Public Use
  Company Number: B0794307A

PATIENT
  Sex: Female
  Weight: 75.8414 kg

DRUGS (20)
  1. MULTI-VITAMINS [Concomitant]
  2. SOMNIUM [Concomitant]
  3. MAGNESIUM ASPARTATE [Concomitant]
  4. CALCIUM-SANDOZ FORTE [Concomitant]
  5. CARVEDILOL [Concomitant]
  6. HYDROCORTISONE [Concomitant]
  7. MELATONIN [Concomitant]
  8. SITAGLIPTIN PHOSPHATE [Concomitant]
  9. DIMETHINDENE MALEATE (FORMULATION UNKNOWN) (DIMETHINDENE MALEATE) [Suspect]
     Indication: PRODUCT USED FOR UNKNOWN INDICATION
     Dosage: UNK / UNK / INTRAVENOUS
     Route: 042
     Dates: start: 20120203, end: 20120203
  10. PRAVASTATIN SODIUM [Concomitant]
  11. GLICLAZIDE [Concomitant]
  12. TORSEMIDE [Concomitant]
  13. ASPIRIN [Concomitant]
  14. MEGLUMINE GADOBENATE (FORMULATION UNKNOWN) (MEGLUMINE GADOBENATE) [Suspect]
     Indication: PRODUCT USED FOR UNKNOWN INDICATION
     Dosage: 15 ML / UNK / INTRAVENOUS
     Route: 042
     Dates: start: 20120203, end: 20120203
  15. VITAMIN D [Concomitant]
  16. ALLOPURINOL [Concomitant]
  17. METOCLOPRAMIDE HYDROCHLORIDE [Concomitant]
  18. RANITIDINE HYDROCHLORIDE [Suspect]
     Indication: PRODUCT USED FOR UNKNOWN INDICATION
     Dosage: UNK / UNK / INTRAVENOUS
     Route: 042
     Dates: start: 20120203, end: 20120203
  19. CETIRIZINE HCL [Concomitant]
  20. LEVOTHYROXINE SODIUM [Concomitant]

REACTIONS (6)
  - CARDIAC FAILURE [None]
  - ASTHENIA [None]
  - ATRIAL TACHYCARDIA [None]
  - MALAISE [None]
  - DYSPNOEA [None]
  - CONDITION AGGRAVATED [None]
